FAERS Safety Report 9648121 (Version 36)
Quarter: 2019Q3

REPORT INFORMATION
  Report Type: Report from Study
  Country: CA (occurrence: CA)
  Receive Date: 20131028
  Receipt Date: 20190719
  Transmission Date: 20191005
  Serious: Yes (Death, Hospitalization, Other)
  Sender: FDA-Public Use
  Company Number: PHHY2013CA035167

PATIENT
  Age: 65 Year
  Sex: Male

DRUGS (7)
  1. SANDOSTATIN LAR DEPOT [Suspect]
     Active Substance: OCTREOTIDE ACETATE
     Dosage: 40 MG, QMO (EVERY 4 WEEKS)
     Route: 030
     Dates: end: 20160124
  2. SANDOSTATIN LAR DEPOT [Suspect]
     Active Substance: OCTREOTIDE ACETATE
     Dosage: 60 MG, QMO (EVERY 4 WEEKS)
     Route: 030
     Dates: start: 20160225
  3. ZOPICLONE [Suspect]
     Active Substance: ZOPICLONE
     Indication: PRODUCT USED FOR UNKNOWN INDICATION
     Dosage: 7.5 MG, HS PRN
     Route: 048
  4. SANDOSTATIN LAR DEPOT [Suspect]
     Active Substance: OCTREOTIDE ACETATE
     Dosage: UNK
     Route: 030
     Dates: start: 20190311, end: 20190311
  5. TYLENOL [Concomitant]
     Active Substance: ACETAMINOPHEN
     Indication: PRODUCT USED FOR UNKNOWN INDICATION
     Dosage: (DOSE: 1-2 TABS, FREQUENCY: Q 4-6 HRS), PRN
     Route: 048
  6. AFINITOR [Suspect]
     Active Substance: EVEROLIMUS
     Indication: CARCINOID TUMOUR
     Dosage: 10 MG, QD
     Route: 048
     Dates: start: 20160826
  7. SANDOSTATIN LAR DEPOT [Suspect]
     Active Substance: OCTREOTIDE ACETATE
     Indication: CARCINOID TUMOUR
     Dosage: 30 MG, QMO (EVERY 4 WEEKS )
     Route: 030
     Dates: start: 20130314

REACTIONS (31)
  - Hepatic lesion [Unknown]
  - Chills [Unknown]
  - Fatigue [Unknown]
  - Heart rate decreased [Unknown]
  - Arthritis [Unknown]
  - Asthenia [Unknown]
  - Stress [Unknown]
  - Abdominal distension [Unknown]
  - Fluid retention [Unknown]
  - Malignant neoplasm progression [Unknown]
  - Bacteraemia [Unknown]
  - Synovial cyst [Unknown]
  - Facial pain [Unknown]
  - Oedema peripheral [Recovering/Resolving]
  - Blood chromogranin A increased [Unknown]
  - Body temperature decreased [Unknown]
  - Death [Fatal]
  - Hepatic pain [Recovering/Resolving]
  - Metastases to liver [Unknown]
  - Abdominal pain [Recovered/Resolved]
  - Injection site pain [Recovering/Resolving]
  - Back pain [Unknown]
  - Inappropriate schedule of product administration [Unknown]
  - Fall [Unknown]
  - Abdominal pain upper [Unknown]
  - Nausea [Unknown]
  - Blood pressure increased [Unknown]
  - Cellulitis [Unknown]
  - Vomiting [Recovered/Resolved]
  - Insomnia [Unknown]
  - Needle issue [Unknown]

NARRATIVE: CASE EVENT DATE: 20160922
